FAERS Safety Report 21734296 (Version 1)
Quarter: 2022Q4

REPORT INFORMATION
  Report Type: Spontaneous
  Country: US (occurrence: US)
  Receive Date: 20221215
  Receipt Date: 20221215
  Transmission Date: 20230113
  Serious: No
  Sender: FDA-Public Use
  Company Number: US-Blueprint Medicines Corporation-640

PATIENT
  Sex: Female

DRUGS (1)
  1. AYVAKIT [Suspect]
     Active Substance: AVAPRITINIB
     Indication: Systemic mastocytosis
     Route: 065
     Dates: start: 20221124

REACTIONS (6)
  - Nasopharyngitis [Unknown]
  - Abdominal discomfort [Unknown]
  - Appetite disorder [Unknown]
  - Parosmia [Unknown]
  - Taste disorder [Unknown]
  - Diarrhoea [Unknown]
